FAERS Safety Report 4714237-5 (Version None)
Quarter: 2005Q3

REPORT INFORMATION
  Report Type: 
  Country: None (occurrence: None)
  Receive Date: 20050714
  Receipt Date: 20050630
  Transmission Date: 20060218
  Serious: Yes (Other)
  Sender: FDA-Public Use
  Company Number: ES-JNJFOC-20050700440

PATIENT
  Age: 35 Year
  Sex: Female

DRUGS (10)
  1. INFLIXIMAB [Suspect]
     Dosage: 4TH INFUSION
     Route: 042
  2. INFLIXIMAB [Suspect]
     Dosage: 3RD INFUSION
     Route: 042
  3. INFLIXIMAB [Suspect]
     Dosage: 2ND INFUSION
     Route: 042
  4. INFLIXIMAB [Suspect]
     Indication: RHEUMATOID ARTHRITIS
     Dosage: 1ST INFUSION
     Route: 042
  5. METHOTREXATE [Concomitant]
     Indication: RHEUMATOID ARTHRITIS
     Route: 065
  6. ZAMENE [Concomitant]
     Route: 065
  7. CALCIUM-SANDOZ FORTE [Concomitant]
     Route: 065
  8. CALCIUM-SANDOZ FORTE [Concomitant]
     Route: 065
  9. PRIMPERAN INJ [Concomitant]
     Indication: PREMEDICATION
     Route: 065
  10. ANTI-HISTAMINE TAB [Concomitant]
     Indication: PREMEDICATION
     Route: 065

REACTIONS (5)
  - ARTHRALGIA [None]
  - CONJUNCTIVITIS [None]
  - DERMATITIS EXFOLIATIVE [None]
  - MYALGIA [None]
  - PYREXIA [None]
